FAERS Safety Report 9374475 (Version 2)
Quarter: 2013Q3

REPORT INFORMATION
  Report Type: Report from Study
  Country: US (occurrence: US)
  Receive Date: 20130628
  Receipt Date: 20130819
  Transmission Date: 20140515
  Serious: Yes (Other)
  Sender: FDA-Public Use
  Company Number: US-ASTELLAS-2013US006716

PATIENT
  Age: 63 Year
  Sex: Male

DRUGS (9)
  1. ERLOTINIB TABLET [Suspect]
     Indication: LUNG ADENOCARCINOMA
     Dosage: 150 MG, UID/QD
     Route: 048
  2. ERLOTINIB TABLET [Suspect]
     Indication: METASTASES TO CENTRAL NERVOUS SYSTEM
     Dosage: 150 MG, UID/QD
     Route: 048
     Dates: start: 20130615
  3. ERLOTINIB TABLET [Suspect]
     Indication: METASTASES TO ADRENALS
  4. OXYCODONE [Concomitant]
     Indication: PAIN
     Dosage: 5 MG, PRN
     Route: 048
  5. BUSPIRONE [Concomitant]
     Indication: ALCOHOLISM
     Dosage: 150 MG, PRN
     Route: 048
  6. LEVETIRACETAM [Concomitant]
     Indication: CONVULSION
     Dosage: 750 MG, Q12 HOURS
     Route: 048
  7. HYDROCODONE BITARTRATE [Concomitant]
     Indication: PRODUCT USED FOR UNKNOWN INDICATION
     Dosage: 1 DF, PRN
     Route: 048
  8. CYMBALTA [Concomitant]
     Indication: DEPRESSION
     Dosage: 60 MG, UID/QD
     Route: 048
  9. FENTANYL [Concomitant]
     Indication: PRODUCT USED FOR UNKNOWN INDICATION
     Dosage: 25 MG, UNKNOWN/D
     Route: 062

REACTIONS (4)
  - Convulsion [Recovered/Resolved]
  - Rash [Recovered/Resolved]
  - Skin infection [Recovered/Resolved]
  - Pruritus [Recovered/Resolved]
